FAERS Safety Report 9063777 (Version 1)
Quarter: 2013Q1

REPORT INFORMATION
  Report Type: Report from Study
  Country: US (occurrence: US)
  Receive Date: 20130131
  Receipt Date: 20130131
  Transmission Date: 20140127
  Serious: No
  Sender: FDA-Public Use
  Company Number: US-ABBOTT-12P-163-1017752-00

PATIENT
  Age: 61 Year
  Sex: Female

DRUGS (14)
  1. HUMIRA [Suspect]
     Indication: CROHN^S DISEASE
     Dates: start: 20121119, end: 20121119
  2. HUMIRA [Suspect]
     Dosage: LOADING DOSE
     Dates: start: 20121203
  3. APRISO [Concomitant]
     Indication: CROHN^S DISEASE
     Dosage: IN AM AND PM
     Route: 048
  4. PROTONIX [Concomitant]
     Indication: GASTRIC DISORDER
     Route: 048
  5. URISPAS [Concomitant]
     Indication: BLADDER DISORDER
     Route: 048
  6. MORPHINE SULFATE [Concomitant]
     Indication: PAIN
     Route: 048
  7. PROZAC [Concomitant]
     Indication: NERVOUSNESS
     Route: 048
  8. CREON [Concomitant]
     Indication: CROHN^S DISEASE
     Dosage: 24,000/76,000/120,000 DAILY
     Route: 048
  9. VITAMIN D [Concomitant]
     Indication: VITAMIN SUPPLEMENTATION
     Route: 048
  10. MAGNESIUM OXIDE [Concomitant]
     Indication: PRODUCT USED FOR UNKNOWN INDICATION
  11. POTASSIUM CHLORIDE [Concomitant]
     Indication: BLOOD POTASSIUM DECREASED
     Route: 048
  12. GABAPENTIN [Concomitant]
     Indication: NEUROPATHY PERIPHERAL
     Route: 048
  13. CENTRUM SILVER ADULTS 50+ [Concomitant]
     Indication: VITAMIN SUPPLEMENTATION
     Dosage: DAILY
     Route: 048
  14. B12 [Concomitant]
     Indication: ANAEMIA
     Dosage: MONTHLY
     Route: 030

REACTIONS (1)
  - Diarrhoea [Not Recovered/Not Resolved]
